FAERS Safety Report 12954090 (Version 1)
Quarter: 2016Q4

REPORT INFORMATION
  Report Type: Spontaneous
  Country: CO (occurrence: CO)
  Receive Date: 20161118
  Receipt Date: 20161118
  Transmission Date: 20170207
  Serious: Yes (Other)
  Sender: FDA-Public Use
  Company Number: CO-AMGEN-COLSP2016161646

PATIENT
  Sex: Female

DRUGS (1)
  1. ENBREL [Suspect]
     Active Substance: ETANERCEPT
     Indication: RHEUMATOID ARTHRITIS
     Dosage: 50 MG, WEEKLY
     Route: 058
     Dates: start: 2013

REACTIONS (7)
  - Lip infection [Recovering/Resolving]
  - Pharyngitis [Recovering/Resolving]
  - Rheumatoid nodule [Unknown]
  - Ear infection [Recovering/Resolving]
  - Purulent discharge [Recovering/Resolving]
  - Localised infection [Recovering/Resolving]
  - Postoperative wound infection [Recovering/Resolving]
